FAERS Safety Report 21653313 (Version 1)
Quarter: 2022Q4

REPORT INFORMATION
  Report Type: Spontaneous
  Country: JP (occurrence: JP)
  Receive Date: 20221128
  Receipt Date: 20221128
  Transmission Date: 20230113
  Serious: Yes (Hospitalization, Other)
  Sender: FDA-Public Use
  Company Number: JP-GILEAD-2022-0606354

PATIENT
  Age: 67 Year
  Sex: Male

DRUGS (2)
  1. VEKLURY [Suspect]
     Active Substance: REMDESIVIR
     Indication: COVID-19 pneumonia
     Dosage: UNK
     Route: 065
  2. LOXOPROFEN [Concomitant]
     Active Substance: LOXOPROFEN
     Indication: Gout
     Dosage: UNK
     Route: 048

REACTIONS (3)
  - Pyrexia [Unknown]
  - Rash [Unknown]
  - Tubulointerstitial nephritis [Recovering/Resolving]
